FAERS Safety Report 21168900 (Version 1)
Quarter: 2022Q3

REPORT INFORMATION
  Report Type: Spontaneous
  Country: PT (occurrence: None)
  Receive Date: 20220803
  Receipt Date: 20220803
  Transmission Date: 20221027
  Serious: Yes (Other)
  Sender: FDA-Public Use
  Company Number: 2022A273604

PATIENT
  Age: 74 Year
  Sex: Male

DRUGS (11)
  1. TICAGRELOR [Suspect]
     Active Substance: TICAGRELOR
     Indication: Vascular device user
     Dosage: 90 MG, 2X PER DAY
     Route: 048
     Dates: start: 20220707, end: 20220715
  2. SODIUM CHLORIDE [Concomitant]
     Active Substance: SODIUM CHLORIDE
     Dosage: NACL 0,9% 1000CC EV DAY
  3. ESOMEPRAZOLE [Concomitant]
     Active Substance: ESOMEPRAZOLE
     Route: 048
  4. ASPIRIN [Concomitant]
     Active Substance: ASPIRIN
     Route: 048
  5. QUETIAPINE [Concomitant]
     Active Substance: QUETIAPINE
     Dosage: QUETIAPINE 50MG ORAL LYING
     Route: 048
  6. ALFUZOSIN [Concomitant]
     Active Substance: ALFUZOSIN
     Route: 048
  7. ATORVASTATIN [Concomitant]
     Active Substance: ATORVASTATIN
     Route: 048
  8. OXAZEPAM [Concomitant]
     Active Substance: OXAZEPAM
     Dosage: ORAL OXAZEPAM 7.5MG PA + 30MG LIE DOWN
     Route: 048
  9. ENOXAPARIN [Concomitant]
     Active Substance: ENOXAPARIN
     Route: 058
  10. FLUCONAZOLE [Concomitant]
     Active Substance: FLUCONAZOLE
     Route: 048
  11. PIPERACILLIN AND TAZOBACTAM [Concomitant]
     Active Substance: PIPERACILLIN SODIUM\TAZOBACTAM SODIUM

REACTIONS (4)
  - Blood disorder [Recovered/Resolved]
  - Pulmonary alveolar haemorrhage [Recovered/Resolved]
  - Epistaxis [Recovered/Resolved]
  - Ecchymosis [Recovered/Resolved]

NARRATIVE: CASE EVENT DATE: 20220714
